FAERS Safety Report 23219032 (Version 1)
Quarter: 2023Q4

REPORT INFORMATION
  Report Type: Spontaneous
  Country: US (occurrence: US)
  Receive Date: 20231122
  Receipt Date: 20231122
  Transmission Date: 20240109
  Serious: No
  Sender: FDA-Public Use
  Company Number: US-BAXTER-2023BAX034163

PATIENT

DRUGS (4)
  1. NOREPINEPHRINE BITARTRATE [Suspect]
     Active Substance: NOREPINEPHRINE BITARTRATE
     Dosage: 4 MG/250 ML (16 MCG/ML)
     Route: 065
  2. DEXMEDETOMIDINE [Suspect]
     Active Substance: DEXMEDETOMIDINE
     Route: 065
  3. VANCOMYCIN [Suspect]
     Active Substance: VANCOMYCIN
     Dosage: (MANUFACTURER: XELLIA PHARMACEUTICALS USA, LLC)
     Route: 065
  4. TYLENOL [Suspect]
     Active Substance: ACETAMINOPHEN
     Dosage: MANUFACTURER: FRESENIUS KABI USA, LLC)
     Route: 065

REACTIONS (3)
  - Product label confusion [Unknown]
  - Intercepted medication error [Unknown]
  - No adverse event [Unknown]
